FAERS Safety Report 9886388 (Version 1)
Quarter: 2014Q1

REPORT INFORMATION
  Report Type: Spontaneous
  Country: GB (occurrence: GB)
  Receive Date: 20140210
  Receipt Date: 20140210
  Transmission Date: 20141002
  Serious: Yes (Other)
  Sender: FDA-Public Use
  Company Number: GB-PFIZER INC-2014036229

PATIENT
  Age: 67 Year
  Sex: Male
  Weight: 80.5 kg

DRUGS (5)
  1. RAMIPRIL [Suspect]
     Dosage: UNK
     Route: 065
     Dates: start: 20140123
  2. AMLODIPINE [Concomitant]
     Dosage: UNK
     Route: 065
     Dates: start: 20131113
  3. ASPIRIN [Concomitant]
     Dosage: UNK
     Route: 065
     Dates: start: 20131113
  4. SIMVASTATIN [Concomitant]
     Dosage: UNK
     Route: 065
     Dates: start: 20131113
  5. VALSARTAN [Concomitant]
     Dosage: UNK
     Route: 065
     Dates: start: 20131113

REACTIONS (1)
  - Blister [Recovered/Resolved]
